FAERS Safety Report 6287531-7 (Version None)
Quarter: 2009Q3

REPORT INFORMATION
  Report Type: 
  Country: None (occurrence: None)
  Receive Date: 20090727
  Receipt Date: 20090710
  Transmission Date: 20100115
  Serious: Yes (Hospitalization)
  Sender: FDA-Public Use
  Company Number: 2009PL000249

PATIENT
  Age: 27 Year
  Sex: Female

DRUGS (2)
  1. LOTRONEX [Suspect]
  2. PAIN MEDICATION [Concomitant]

REACTIONS (1)
  - OBSTRUCTION [None]
